FAERS Safety Report 9848490 (Version 1)
Quarter: 2013Q4

REPORT INFORMATION
  Report Type: Spontaneous
  Country: US (occurrence: None)
  Receive Date: 20131224
  Receipt Date: 20131224
  Transmission Date: 20140711
  Serious: Yes (Hospitalization, Other)
  Sender: FDA-Public Use
  Company Number: PHEH2013US003251

PATIENT
  Age: 29 Year
  Sex: Female
  Weight: 108 kg

DRUGS (7)
  1. EXJADE (*CGP 72670*) DISPERSIBLE TABLET [Suspect]
     Indication: THALASSAEMIA BETA
     Route: 048
     Dates: start: 20111026
  2. ASPIRIN (ACETYLSALICYLIC ACID) [Concomitant]
  3. ATIVAN (LORAZEPAM) [Concomitant]
  4. PENICILLINA (BENZYLPENICILLIN) [Concomitant]
  5. DESFERAL (DEFEROXAMINE MESILATE) [Concomitant]
  6. VITAMIN B 12 (VITAMIN B NOS) [Concomitant]
  7. COLECALCIFEROL (COLECALCIFEROL) [Concomitant]

REACTIONS (7)
  - Fanconi syndrome acquired [None]
  - Serum ferritin increased [None]
  - Liver disorder [None]
  - Liver function test abnormal [None]
  - Blood creatinine increased [None]
  - Blood potassium decreased [None]
  - Blood phosphorus decreased [None]
